FAERS Safety Report 16900502 (Version 1)
Quarter: 2019Q4

REPORT INFORMATION
  Report Type: Spontaneous
  Country: ES (occurrence: ES)
  Receive Date: 20191009
  Receipt Date: 20191009
  Transmission Date: 20200122
  Serious: Yes (Other)
  Sender: FDA-Public Use
  Company Number: ES-ANIPHARMA-2019-ES-000075

PATIENT
  Age: 85 Year
  Sex: Female

DRUGS (3)
  1. LEUPRORELIN [Suspect]
     Active Substance: LEUPROLIDE ACETATE
     Dosage: UNK
     Route: 065
     Dates: start: 20190604
  2. BICALUTAMIDE. [Suspect]
     Active Substance: BICALUTAMIDE
     Indication: PROSTATE CANCER
     Dosage: UNK
     Route: 048
     Dates: start: 20150908
  3. CEFEPIME [Suspect]
     Active Substance: CEFEPIME HYDROCHLORIDE
     Dosage: UNK
     Route: 042
     Dates: start: 20190903

REACTIONS (3)
  - Thrombocytopenia [Unknown]
  - Anaemia [Unknown]
  - Bicytopenia [Unknown]

NARRATIVE: CASE EVENT DATE: 20190902
